FAERS Safety Report 19450611 (Version 3)
Quarter: 2021Q3

REPORT INFORMATION
  Report Type: Report from Study
  Country: IN (occurrence: IN)
  Receive Date: 20210622
  Receipt Date: 20210716
  Transmission Date: 20211014
  Serious: Yes (Hospitalization)
  Sender: FDA-Public Use
  Company Number: IN-BAXTER-2021BAX016669

PATIENT
  Age: 7 Year
  Sex: Male

DRUGS (1)
  1. PERITONEAL DIALYSIS SOLUTION WITH 1.5% DEXTROSE [Suspect]
     Active Substance: CALCIUM CHLORIDE\DEXTROSE\MAGNESIUM CHLORIDE\SODIUM CHLORIDE\SODIUM LACTATE
     Indication: RENAL FAILURE
     Dosage: 1 BAG
     Route: 033
     Dates: end: 20210706

REACTIONS (3)
  - Urinary tract infection [Recovered/Resolved]
  - Peritonitis [Recovering/Resolving]
  - Peritoneal dialysis complication [Recovering/Resolving]

NARRATIVE: CASE EVENT DATE: 20210519
